FAERS Safety Report 5085373-1 (Version None)
Quarter: 2006Q3

REPORT INFORMATION
  Report Type: 
  Country: None (occurrence: None)
  Receive Date: 20060822
  Receipt Date: 20060601
  Transmission Date: 20061208
  Serious: Yes (Other)
  Sender: FDA-Public Use
  Company Number: PHEH2006US07164

PATIENT
  Age: 41 Year
  Sex: Female
  Weight: 68.027 kg

DRUGS (4)
  1. ZELNORM [Suspect]
     Indication: IRRITABLE BOWEL SYNDROME
     Dosage: 2 MG, BID
     Route: 048
     Dates: start: 20060401, end: 20060501
  2. PREVACID [Concomitant]
  3. MESALAZINE [Concomitant]
     Dosage: 1 G, BID
     Route: 048
  4. ELIDEL [Concomitant]
     Route: 061

REACTIONS (1)
  - RECTAL HAEMORRHAGE [None]
